FAERS Safety Report 18268245 (Version 2)
Quarter: 2020Q4

REPORT INFORMATION
  Report Type: Spontaneous
  Country: US (occurrence: US)
  Receive Date: 20200915
  Receipt Date: 20201008
  Transmission Date: 20210113
  Serious: Yes (Other)
  Sender: FDA-Public Use
  Company Number: US-TEVA-2020-US-1827357

PATIENT
  Age: 69 Year
  Sex: Male

DRUGS (5)
  1. LEVODOPA/CARBIDOPA [Suspect]
     Active Substance: CARBIDOPA\LEVODOPA
     Indication: PARKINSON^S DISEASE
     Dosage: LEVODOPA 250/CARBIDOPA:25MG 5 TIMES DAILY
     Route: 065
  2. ENTACAPONE. [Concomitant]
     Active Substance: ENTACAPONE
     Indication: PARKINSON^S DISEASE
     Dosage: 200 MILLIGRAM DAILY; 5 TIMES DAILY
     Route: 065
  3. LEVODOPA-CARBIDOPA [Suspect]
     Active Substance: CARBIDOPA\LEVODOPA
     Indication: PARKINSON^S DISEASE
     Dosage: LEVODOPA 200/CARBIDOPA:50MG CONTROLLED RELEASE AT BEDTIME
     Route: 065
  4. RASAGILINE. [Concomitant]
     Active Substance: RASAGILINE
     Indication: PARKINSON^S DISEASE
     Dosage: 1 MILLIGRAM DAILY;
     Route: 065
  5. ROPINIROLE. [Suspect]
     Active Substance: ROPINIROLE
     Indication: PARKINSON^S DISEASE
     Dosage: 2 MILLIGRAM DAILY; 5 TIMES DAILY
     Route: 065

REACTIONS (1)
  - Hallucination, visual [Recovering/Resolving]
